FAERS Safety Report 7174261-2 (Version None)
Quarter: 2010Q4

REPORT INFORMATION
  Report Type: 
  Country: None (occurrence: None)
  Receive Date: 20101219
  Receipt Date: 20100323
  Transmission Date: 20110411
  Serious: No
  Sender: FDA-Public Use
  Company Number: US-AMGEN-KDL401376

PATIENT

DRUGS (13)
  1. ENBREL [Suspect]
     Indication: PRODUCT USED FOR UNKNOWN INDICATION
     Dosage: 25 MG, 2 TIMES/WK
     Route: 058
  2. MELOXICAM [Concomitant]
     Dosage: 15 MG, UNK
  3. METHOTREXATE [Concomitant]
     Dosage: 2.5 MG, UNK
  4. PREDNISONE [Concomitant]
     Dosage: 5 MG, UNK
  5. NATEGLINIDE [Concomitant]
     Dosage: 120 MG, UNK
  6. INSULIN GLARGINE [Concomitant]
     Dosage: 100 ML, UNK
  7. METFORMIN [Concomitant]
     Dosage: 500 MG, UNK
  8. OMEPRAZOLE [Concomitant]
     Dosage: 10 MG, UNK
  9. SIMVASTATIN [Concomitant]
     Dosage: 10 MG, UNK
  10. FOLIC ACID [Concomitant]
     Dosage: 1 MG, UNK
  11. CALCIUM [Concomitant]
     Dosage: UNK UNK, UNK
  12. PIOGLITAZONE HCL [Concomitant]
     Dosage: 45 MG, UNK
  13. SITAGLIPTIN [Concomitant]
     Dosage: 100 MG, UNK

REACTIONS (1)
  - PRURITUS [None]
